FAERS Safety Report 4693722-9 (Version None)
Quarter: 2005Q2

REPORT INFORMATION
  Report Type: 
  Country: None (occurrence: None)
  Receive Date: 20050615
  Receipt Date: 20050526
  Transmission Date: 20051028
  Serious: Yes (Other)
  Sender: FDA-Public Use
  Company Number: USA050599140

PATIENT
  Sex: Female

DRUGS (4)
  1. FORTEO [Suspect]
     Indication: OSTEOPOROSIS
     Dates: start: 20040501
  2. PLAVIX [Concomitant]
  3. PREDNISONE (PREDNISONE /00044701/) [Concomitant]
  4. VIAGRA (SILDEMAFIL CITRATE) [Concomitant]

REACTIONS (1)
  - CAROTID ARTERY STENOSIS [None]
